FAERS Safety Report 9951424 (Version 3)
Quarter: 2014Q1

REPORT INFORMATION
  Report Type: Spontaneous
  Country: US (occurrence: US)
  Receive Date: 20140304
  Receipt Date: 20140331
  Transmission Date: 20141002
  Serious: Yes (Other)
  Sender: FDA-Public Use
  Company Number: US-PFIZER INC-2014033267

PATIENT
  Age: 57 Year
  Sex: Female

DRUGS (19)
  1. LYRICA [Suspect]
     Indication: FIBROMYALGIA
     Dosage: 75 MG, 2X/DAY
     Route: 048
     Dates: start: 20131221
  2. LYRICA [Suspect]
     Dosage: 75 MG, 2X/DAY
     Dates: start: 20130812
  3. LYRICA [Suspect]
     Dosage: 75 MG, 2X/DAY
     Dates: start: 20130920
  4. LYRICA [Suspect]
     Dosage: 75 MG, 2X/DAY
     Dates: start: 20131022
  5. LYRICA [Suspect]
     Dosage: 75 MG, 2X/DAY
     Dates: start: 20140123
  6. FLEXERIL [Concomitant]
     Indication: MYALGIA
     Dosage: 10MG, 1/2-1 TABLET TID/PRN
     Route: 048
     Dates: start: 20110831
  7. FLEXERIL [Concomitant]
     Indication: MUSCLE SPASMS
     Dosage: 10MG, 1/2 - 1 TAB TWICE TIMES DAILY, AS NEEDED
     Dates: start: 20121119
  8. FLEXERIL [Concomitant]
     Dosage: 10MG, 1/2-1 TABLET TWICE DAILY AS NEEDED
     Dates: start: 20140122
  9. ASPIRIN [Concomitant]
     Indication: HYPERLIPIDAEMIA
     Dosage: 81MG ONE TABLET DAILY
     Route: 048
     Dates: start: 20090122
  10. FENOFIBRATE [Concomitant]
     Indication: DYSLIPIDAEMIA
     Dosage: 160 MG, 1X/DAY (1 ORAL DAILY WITH A MEAL)
     Route: 048
     Dates: start: 20121009
  11. FENOFIBRATE [Concomitant]
     Dosage: 160 MG, 1 TABLET DAILY
     Dates: start: 20131205
  12. AMLODIPINE BESYLATE [Concomitant]
     Indication: HYPERTENSION
     Dosage: 10 MG, 1X/DAY
     Route: 048
     Dates: start: 20121109
  13. AMLODIPINE BESYLATE [Concomitant]
     Dosage: 10 MG, 1X/DAY (1 TABLET DAILY)
     Dates: start: 20130812
  14. AMITRIPTYLINE HYDROCHLORIDE [Concomitant]
     Indication: INSOMNIA
     Dosage: 25MG ONE TABLET AT BEDTIME
     Dates: start: 20131008
  15. AMITRIPTYLINE HYDROCHLORIDE [Concomitant]
     Indication: ANXIETY
  16. LACTULOSE [Concomitant]
     Indication: CONSTIPATION
     Dosage: 20GM/30ML, 20GRAMS SOLUTION DAILY
     Dates: start: 20130716
  17. DEPAKOTE [Concomitant]
     Indication: AFFECTIVE DISORDER
     Dosage: 250MG ONE TABLET DR IN AM AND 2 TAB IN PM
     Dates: start: 20130812
  18. DEPAKOTE [Concomitant]
     Indication: INSOMNIA
  19. DEPAKOTE [Concomitant]
     Indication: HEADACHE

REACTIONS (14)
  - Pulmonary fibrosis [Unknown]
  - Major depression [Unknown]
  - Pain [Unknown]
  - Sensation of heaviness [Unknown]
  - Muscular weakness [Unknown]
  - Obesity [Unknown]
  - Tobacco abuse [Unknown]
  - Limb asymmetry [Unknown]
  - Radicular pain [Unknown]
  - Blood glucose abnormal [Unknown]
  - Essential hypertension [Unknown]
  - Insomnia [Unknown]
  - Irritable bowel syndrome [Unknown]
  - Back pain [Unknown]
